FAERS Safety Report 23823037 (Version 2)
Quarter: 2024Q2

REPORT INFORMATION
  Report Type: Spontaneous
  Country: US (occurrence: None)
  Receive Date: 20240507
  Receipt Date: 20240610
  Transmission Date: 20240715
  Serious: No
  Sender: FDA-Public Use
  Company Number: 2024A084410

PATIENT

DRUGS (1)
  1. FASENRA [Suspect]
     Active Substance: BENRALIZUMAB
     Dosage: 30.0MG/ML UNKNOWN
     Route: 058

REACTIONS (12)
  - Chills [Unknown]
  - Dermatitis [Unknown]
  - Dysstasia [Unknown]
  - Fatigue [Unknown]
  - Influenza like illness [Unknown]
  - Arthralgia [Unknown]
  - Palpitations [Unknown]
  - Photosensitivity reaction [Unknown]
  - Rash erythematous [Unknown]
  - Dysphagia [Unknown]
  - Lymphadenopathy [Unknown]
  - Device breakage [Unknown]
